FAERS Safety Report 6308576-4 (Version None)
Quarter: 2009Q3

REPORT INFORMATION
  Report Type: 
  Country: None (occurrence: None)
  Receive Date: 20090813
  Receipt Date: 20090803
  Transmission Date: 20100115
  Serious: Yes (Death, Life-Threatening, Hospitalization)
  Sender: FDA-Public Use
  Company Number: ZA-ABBOTT-09P-143-0559277-00

PATIENT
  Sex: Female
  Weight: 56 kg

DRUGS (10)
  1. HUMIRA [Suspect]
     Indication: RHEUMATOID ARTHRITIS
     Route: 058
     Dates: start: 20080929
  2. METHOTREXATE [Suspect]
     Indication: RHEUMATOID ARTHRITIS
     Route: 048
     Dates: start: 20080929, end: 20090216
  3. COXFLAM [Concomitant]
     Indication: RHEUMATOID ARTHRITIS
     Dates: start: 20080903, end: 20090301
  4. FOSAMAX [Concomitant]
     Indication: OSTEOPOROSIS
     Dates: start: 19960101, end: 20090301
  5. CALTRATE D [Concomitant]
     Indication: OSTEOPOROSIS
     Dates: start: 19960101, end: 20090301
  6. ZESTORETIC [Concomitant]
     Indication: HYPERTENSION
     Dates: start: 19950101, end: 20090301
  7. ISONIAZID [Concomitant]
     Indication: ANTIBIOTIC PROPHYLAXIS
     Dates: start: 20080915, end: 20090301
  8. PYRIDOXINE [Concomitant]
     Indication: ANTIBIOTIC PROPHYLAXIS
     Dates: start: 20080915, end: 20090301
  9. CELEBREX [Concomitant]
     Indication: RHEUMATOID ARTHRITIS
     Dates: start: 20080401, end: 20080902
  10. FOLIC ACID [Concomitant]
     Indication: VITAMIN SUPPLEMENTATION
     Dates: start: 20080929, end: 20090301

REACTIONS (1)
  - INTERSTITIAL LUNG DISEASE [None]
